FAERS Safety Report 9289879 (Version 4)
Quarter: 2013Q2

REPORT INFORMATION
  Report Type: Spontaneous
  Country: IE (occurrence: IE)
  Receive Date: 20130515
  Receipt Date: 20130607
  Transmission Date: 20140414
  Serious: Yes (Other)
  Sender: FDA-Public Use
  Company Number: PHFR2010IE01692

PATIENT
  Age: 29 Year
  Sex: Male

DRUGS (9)
  1. CLOZARIL [Suspect]
     Indication: SCHIZOPHRENIA
     Dosage: UNK
     Route: 048
     Dates: start: 20090828
  2. CLOZARIL [Suspect]
     Dosage: 325 MG, UNK
  3. KWELLS [Concomitant]
     Indication: EXTRAPYRAMIDAL DISORDER
     Dosage: UNK (HALF)
     Route: 048
  4. EPILIM [Concomitant]
     Indication: EPILEPSY
     Dosage: 900 MG, UNK
     Route: 048
  5. ARIPIPRAZOLE [Concomitant]
     Indication: SCHIZOPHRENIA
     Dosage: 20 MG, UNK
     Route: 048
  6. CLOBAZAM [Concomitant]
     Indication: EPILEPSY
     Dosage: 20 MG, UNK
     Route: 048
  7. DESMOTABS [Concomitant]
     Indication: URINARY INCONTINENCE
     Dosage: 120 MG, UNK
  8. LORAZEPAM [Concomitant]
     Indication: ANXIETY
     Dosage: 0.5 MG, UNK
     Route: 048
  9. SENOKOT [Concomitant]
     Indication: CONSTIPATION
     Dosage: UNK (HALF)
     Route: 048

REACTIONS (2)
  - Platelet count decreased [Not Recovered/Not Resolved]
  - Schizophrenia [Not Recovered/Not Resolved]
